FAERS Safety Report 13660621 (Version 2)
Quarter: 2017Q2

REPORT INFORMATION
  Report Type: Spontaneous
  Country: US (occurrence: US)
  Receive Date: 20170616
  Receipt Date: 20170629
  Transmission Date: 20170830
  Serious: No
  Sender: FDA-Public Use
  Company Number: US-XTTRIUM LABORATORIES, INC-2022127

PATIENT
  Age: 55 Year
  Sex: Female
  Weight: 65.91 kg

DRUGS (1)
  1. CHLORHEXIDINE GLUCONATE. [Suspect]
     Active Substance: CHLORHEXIDINE GLUCONATE
     Indication: TOOTH EXTRACTION
     Route: 002
     Dates: start: 20160922, end: 20160926

REACTIONS (4)
  - Gingival swelling [Unknown]
  - Noninfective gingivitis [Unknown]
  - Gingival pain [Unknown]
  - Gingival erythema [Unknown]

NARRATIVE: CASE EVENT DATE: 20160922
